FAERS Safety Report 22277767 (Version 1)
Quarter: 2023Q2

REPORT INFORMATION
  Report Type: Spontaneous
  Country: US (occurrence: US)
  Receive Date: 20230503
  Receipt Date: 20230503
  Transmission Date: 20230721
  Serious: Yes (Hospitalization, Other)
  Sender: FDA-Public Use
  Company Number: US-CADILA HEALTHCARE LIMITED-US-ZYDUS-091294

PATIENT

DRUGS (14)
  1. IVERMECTIN [Suspect]
     Active Substance: IVERMECTIN
     Indication: COVID-19 prophylaxis
     Dosage: 100 MILLIGRAM, QD
     Route: 065
  2. HERBALS\WITHANIA SOMNIFERA ROOT [Concomitant]
     Active Substance: HERBALS\WITHANIA SOMNIFERA ROOT
     Indication: Product used for unknown indication
     Dosage: UNK
     Route: 065
  3. ARCTOSTAPHYLOS UVA-URSI LEAF [Concomitant]
     Active Substance: ARCTOSTAPHYLOS UVA-URSI LEAF
     Indication: Product used for unknown indication
     Dosage: UNK
     Route: 065
  4. CHI SHAO [Concomitant]
     Indication: Product used for unknown indication
     Dosage: UNK
     Route: 065
  5. BURDOCK ROOT [Concomitant]
     Indication: Product used for unknown indication
     Dosage: UNK
     Route: 065
  6. SERRAPEPTASE [Concomitant]
     Active Substance: SERRAPEPTASE
     Indication: Product used for unknown indication
     Dosage: UNK
     Route: 065
  7. DIETARY SUPPLEMENT\HERBALS [Concomitant]
     Active Substance: DIETARY SUPPLEMENT\HERBALS
     Indication: Product used for unknown indication
     Dosage: UNK
     Route: 065
  8. MULLEIN [Concomitant]
     Indication: Product used for unknown indication
     Dosage: UNK
     Route: 065
  9. FUCUS VESICULOSUS [Concomitant]
     Active Substance: FUCUS VESICULOSUS
     Indication: Product used for unknown indication
     Dosage: UNK
     Route: 065
  10. DANDELION [Concomitant]
     Active Substance: TARAXACUM OFFICINALE POLLEN
     Indication: Product used for unknown indication
     Dosage: UNK
     Route: 065
  11. AZADIRACHTA INDICA BARK [Concomitant]
     Active Substance: AZADIRACHTA INDICA BARK
     Indication: Product used for unknown indication
     Dosage: UNK
     Route: 065
  12. URTICA DIOICA LEAF [Concomitant]
     Active Substance: URTICA DIOICA LEAF
     Indication: Product used for unknown indication
     Dosage: UNK
     Route: 065
  13. NIACIN [Concomitant]
     Active Substance: NIACIN
     Indication: Product used for unknown indication
     Dosage: UNK
     Route: 065
  14. DIETARY SUPPLEMENT [Concomitant]
     Active Substance: DIETARY SUPPLEMENT
     Indication: Product used for unknown indication
     Dosage: UNK
     Route: 065

REACTIONS (2)
  - Hepatic failure [Recovered/Resolved]
  - Intentional product misuse [Unknown]
